FAERS Safety Report 10188442 (Version 2)
Quarter: 2014Q2

REPORT INFORMATION
  Report Type: Spontaneous
  Country: JP (occurrence: JP)
  Receive Date: 20140522
  Receipt Date: 20140602
  Transmission Date: 20141212
  Serious: No
  Sender: FDA-Public Use
  Company Number: JP-SUCAMPO PHARMA AMERICAS, INC-SPI201400363

PATIENT
  Age: 35 Year
  Sex: Female
  Weight: 50 kg

DRUGS (4)
  1. AMITIZA [Suspect]
     Indication: CONSTIPATION
     Dosage: 24 MCG, QD
     Route: 048
     Dates: start: 20140425, end: 20140425
  2. AMITIZA [Suspect]
     Dosage: 24 MCG, BID
     Route: 048
     Dates: start: 20140426, end: 20140426
  3. PANTOSIN [Concomitant]
     Indication: CONSTIPATION
     Dosage: 60 MG, UNK
     Route: 048
     Dates: start: 20140418, end: 20140509
  4. PURSENNID [Concomitant]
     Indication: CONSTIPATION
     Dosage: 24 MG, QD
     Route: 048
     Dates: start: 20140418, end: 20140509

REACTIONS (2)
  - Dyspnoea [Recovered/Resolved]
  - Cough [Recovered/Resolved]
